FAERS Safety Report 10206211 (Version 1)
Quarter: 2014Q2

REPORT INFORMATION
  Report Type: Spontaneous
  Country: US (occurrence: None)
  Receive Date: 20140527
  Receipt Date: 20140527
  Transmission Date: 20141212
  Serious: No
  Sender: FDA-Public Use
  Company Number: None

PATIENT
  Age: 1 Day
  Sex: Male
  Weight: 3 kg

DRUGS (4)
  1. ERYTHROMYCIN [Suspect]
     Indication: INFECTION PROPHYLAXIS
     Dosage: 1 APPLICATION, ONCE, OPHTHALMIC?
     Route: 047
     Dates: start: 20140517, end: 20140520
  2. HEPATITIS B VACCINE [Concomitant]
  3. VITAMIN K [Concomitant]
  4. ACETAMINOPHEN [Concomitant]

REACTIONS (1)
  - Product quality issue [None]
